FAERS Safety Report 4648253-9 (Version None)
Quarter: 2005Q2

REPORT INFORMATION
  Report Type: 
  Country: None (occurrence: None)
  Receive Date: 20050426
  Receipt Date: 20050413
  Transmission Date: 20051028
  Serious: Yes (Hospitalization)
  Sender: FDA-Public Use
  Company Number: 2005059825

PATIENT
  Sex: Female
  Weight: 77.1115 kg

DRUGS (2)
  1. BEXTRA [Suspect]
     Indication: ARTHRALGIA
     Dosage: 10 MG (10 MG, 1 IN 1 D), ORAL
     Route: 048
     Dates: start: 20040101, end: 20050120
  2. ACETAMINOPHEN [Concomitant]

REACTIONS (2)
  - ERYTHEMA [None]
  - RASH PAPULAR [None]
